FAERS Safety Report 6199564 (Version 38)
Quarter: 2013Q3

REPORT INFORMATION
  Report Type: Spontaneous
  Country: US (occurrence: US)
  Receive Date: 20061221
  Receipt Date: 20130920
  Transmission Date: 20140515
  Serious: Yes (Hospitalization, Other)
  Sender: FDA-Public Use
  Company Number: PHEH2006US15259

PATIENT
  Age: 61 Year
  Sex: Male

DRUGS (75)
  1. AREDIA [Suspect]
     Route: 042
     Dates: end: 20060801
  2. ZOMETA [Suspect]
     Indication: PLASMA CELL MYELOMA
     Route: 042
  3. CHEMOTHERAPEUTICS NOS [Concomitant]
     Dates: start: 200012
  4. PREDNISONE [Concomitant]
  5. VALIUM [Concomitant]
  6. PROZAC [Concomitant]
  7. VICODIN [Concomitant]
  8. MECLIZINE [Concomitant]
  9. NITROQUICK [Concomitant]
  10. ISOSORBIDE [Concomitant]
  11. KLONOPIN [Concomitant]
  12. PRILOSEC [Concomitant]
  13. TOPROL XL [Concomitant]
  14. OXYCODONE [Concomitant]
  15. DOCUSATE SODIUM [Concomitant]
  16. CLINDAMYCIN [Concomitant]
  17. VITAMIN B6 [Concomitant]
  18. OXYCONTIN [Concomitant]
  19. LANOXIN [Concomitant]
  20. CELEXA [Concomitant]
  21. POTASSIUM CHLORIDE [Concomitant]
  22. CENTRUM [Concomitant]
  23. MOTRIN [Concomitant]
  24. SENOKOT-S [Concomitant]
  25. HYDRALAZINE [Concomitant]
  26. TESSALON PERLE [Concomitant]
  27. FUROSEMIDE [Concomitant]
  28. AMITRIPTYLINE [Concomitant]
  29. NEURONTIN [Concomitant]
  30. CLARINEX                                /DEN/ [Concomitant]
  31. PREDNISOLONE [Concomitant]
  32. TYLENOL EXTRA-STRENGTH [Concomitant]
  33. FLEXERIL [Concomitant]
  34. SINGULAIR [Concomitant]
  35. DILAUDID [Concomitant]
  36. ZOFRAN [Concomitant]
  37. ANTIVERT [Concomitant]
  38. PROTONIX [Concomitant]
  39. MIRAPEX [Concomitant]
  40. ELAVIL [Concomitant]
  41. HALOPERIDOL [Concomitant]
  42. CARVEDILOL [Concomitant]
  43. FINASTERIDE [Concomitant]
  44. ZOLPIDEM [Concomitant]
  45. MIRAPEX ^BOEHRINGER INGELHEIM^ [Concomitant]
  46. AMOXICILLIN W/CLAVULANIC ACID [Concomitant]
  47. CHLORHEXIDINE [Concomitant]
  48. AUGMENTIN [Concomitant]
  49. CITALOPRAM [Concomitant]
  50. FLOMAX ^BOEHRINGER INGELHEIM^ [Concomitant]
  51. LEVAQUIN [Concomitant]
  52. APRESOLINE [Concomitant]
  53. NEXIUM [Concomitant]
     Dosage: 40 MG, QD
     Route: 048
  54. PHENERGAN WITH CODEINE [Concomitant]
  55. Z-PAK [Concomitant]
  56. FLONASE [Concomitant]
  57. MUCINEX [Concomitant]
  58. TETRACYCLINE [Concomitant]
  59. ATROVENT [Concomitant]
  60. REGLAN                                  /USA/ [Concomitant]
  61. ACIDOPHILUS ^ZYMA^ [Concomitant]
  62. UNISOM [Concomitant]
  63. IBUPROFEN [Concomitant]
  64. AVODART [Concomitant]
  65. CENTRUM SILVER [Concomitant]
  66. KLOR-CON [Concomitant]
  67. CLEOCIN [Concomitant]
     Dosage: 300 MG, TID
     Route: 048
  68. LASIX [Concomitant]
     Dosage: 80 MG, BID
     Route: 048
  69. GAS-X [Concomitant]
  70. ZITHROMAX [Concomitant]
  71. MYLICON [Concomitant]
  72. MELOXICAM [Concomitant]
     Dosage: 75 MG, TID
  73. SILDENAFIL CITRATE [Concomitant]
     Dosage: 50 MG, PRN
  74. SIMETHICONE [Concomitant]
     Dosage: 80 MG, QID
  75. METOLAZONE [Concomitant]
     Dosage: 5 MG, QD

REACTIONS (119)
  - Ludwig angina [Unknown]
  - Osteonecrosis of jaw [Unknown]
  - Bone disorder [Unknown]
  - Dental pulp disorder [Unknown]
  - Tooth fracture [Unknown]
  - Dental caries [Unknown]
  - Pain in jaw [Unknown]
  - Fistula [Unknown]
  - Sensitivity of teeth [Unknown]
  - General physical health deterioration [Unknown]
  - Oral pain [Unknown]
  - Osteomyelitis [Unknown]
  - Mastication disorder [Unknown]
  - Pain [Unknown]
  - Anxiety [Unknown]
  - Decreased interest [Unknown]
  - Skin mass [Unknown]
  - Urinary retention [Unknown]
  - Neuropathy peripheral [Unknown]
  - Osteopenia [Unknown]
  - Cerebral atrophy [Unknown]
  - Sinus disorder [Unknown]
  - Plasma cell myeloma [Unknown]
  - Lymphadenopathy [Unknown]
  - Bone pain [Unknown]
  - Arthralgia [Unknown]
  - Vision blurred [Unknown]
  - Headache [Unknown]
  - Arthropathy [Unknown]
  - Spinal fusion acquired [Unknown]
  - Osteoarthritis [Unknown]
  - Musculoskeletal pain [Unknown]
  - Back pain [Unknown]
  - Radiculopathy [Unknown]
  - Chondromalacia [Unknown]
  - Pain in extremity [Unknown]
  - Ejection fraction decreased [Unknown]
  - Dizziness [Unknown]
  - Chills [Unknown]
  - Electrocardiogram T wave abnormal [Unknown]
  - Venous thrombosis [Unknown]
  - Lung consolidation [Unknown]
  - Mental disorder [Unknown]
  - Dyspnoea [Unknown]
  - Lung infiltration [Recovered/Resolved]
  - Overdose [Unknown]
  - Hyperhidrosis [Unknown]
  - Encephalopathy [Unknown]
  - Apnoea [Unknown]
  - Unresponsive to stimuli [Unknown]
  - Ventricular extrasystoles [Unknown]
  - Pyrexia [Unknown]
  - Chronic obstructive pulmonary disease [Unknown]
  - Bronchial secretion retention [Unknown]
  - Myasthenia gravis [Unknown]
  - Diplopia [Unknown]
  - Haemoptysis [Unknown]
  - Urinary tract infection [Unknown]
  - Sepsis [Unknown]
  - Atrial fibrillation [Unknown]
  - Electrocardiogram ST segment depression [Unknown]
  - Device malfunction [Unknown]
  - Cerebrovascular accident [Unknown]
  - Bundle branch block left [Unknown]
  - Sputum discoloured [Unknown]
  - Electrocardiogram QT prolonged [Unknown]
  - Left atrial dilatation [Unknown]
  - Pancytopenia [Unknown]
  - Neutropenic sepsis [Unknown]
  - Asthenia [Unknown]
  - Cardiomegaly [Unknown]
  - Spinal compression fracture [Unknown]
  - Cholelithiasis [Unknown]
  - Ileus [Unknown]
  - Pneumonia [Unknown]
  - Extrapyramidal disorder [Unknown]
  - Metastases to bone [Unknown]
  - Atelectasis [Unknown]
  - Dysphagia [Unknown]
  - Intervertebral disc degeneration [Unknown]
  - Intervertebral disc compression [Unknown]
  - Spinal osteoarthritis [Unknown]
  - Kyphosis [Unknown]
  - Cervical cord compression [Unknown]
  - Flank pain [Unknown]
  - Pulmonary hypertension [Unknown]
  - Pulmonary mass [Unknown]
  - Connective tissue disorder [Unknown]
  - Osteosclerosis [Unknown]
  - Cardiomyopathy [Unknown]
  - Ventricular tachycardia [Unknown]
  - Congo-Crimean haemorrhagic fever [Unknown]
  - Bronchitis chronic [Unknown]
  - Dyspnoea exertional [Unknown]
  - Renal failure chronic [Unknown]
  - Barrett^s oesophagus [Unknown]
  - Axonal neuropathy [Unknown]
  - Lung disorder [Unknown]
  - Scoliosis [Unknown]
  - Fall [Unknown]
  - Soft tissue injury [Unknown]
  - Oral discharge [Recovered/Resolved]
  - Joint effusion [Unknown]
  - Osteoradionecrosis [Unknown]
  - Vascular calcification [Unknown]
  - Spondylolisthesis [Unknown]
  - Pelvic pain [Unknown]
  - Occipital neuralgia [Unknown]
  - Local swelling [Unknown]
  - Muscle spasms [Unknown]
  - Tenosynovitis [Unknown]
  - Bursitis [Unknown]
  - Prostate cancer [Unknown]
  - Second primary malignancy [Unknown]
  - Bone swelling [Unknown]
  - Bone lesion [Unknown]
  - Pruritus [Unknown]
  - Dysthymic disorder [Unknown]
  - Fatigue [Unknown]
